FAERS Safety Report 14832962 (Version 1)
Quarter: 2018Q2

REPORT INFORMATION
  Report Type: Spontaneous
  Country: US (occurrence: US)
  Receive Date: 20180411
  Receipt Date: 20180411
  Transmission Date: 20180711
  Serious: Yes (Hospitalization, Other)
  Sender: FDA-Public Use
  Company Number: None

PATIENT
  Sex: Male

DRUGS (10)
  1. ALPRAZOLAM. [Concomitant]
     Active Substance: ALPRAZOLAM
  2. CARVEDILOL. [Concomitant]
     Active Substance: CARVEDILOL
  3. LYRICA [Concomitant]
     Active Substance: PREGABALIN
  4. CABERGOLINE. [Concomitant]
     Active Substance: CABERGOLINE
  5. RABEPRAZOLE [Concomitant]
     Active Substance: RABEPRAZOLE
  6. FUROSEMIDE. [Concomitant]
     Active Substance: FUROSEMIDE
  7. OMEGA 3 ACID [Concomitant]
  8. LOSARTAN POT [Concomitant]
     Active Substance: LOSARTAN POTASSIUM
  9. ALLOPURINOL. [Concomitant]
     Active Substance: ALLOPURINOL
  10. HUMIRA [Suspect]
     Active Substance: ADALIMUMAB
     Indication: COLITIS ULCERATIVE
     Route: 058
     Dates: start: 20121227

REACTIONS (2)
  - Condition aggravated [None]
  - Drug dose omission [None]
